FAERS Safety Report 5973403-1 (Version None)
Quarter: 2008Q4

REPORT INFORMATION
  Report Type: 
  Country: None (occurrence: None)
  Receive Date: 20081201
  Receipt Date: 20081124
  Transmission Date: 20090506
  Serious: Yes (Other)
  Sender: FDA-Public Use
  Company Number: AU-ASTRAZENECA-2008AP08808

PATIENT
  Age: 55 Year
  Sex: Male
  Weight: 104 kg

DRUGS (11)
  1. CRESTOR [Suspect]
     Indication: HYPERCHOLESTEROLAEMIA
     Route: 048
     Dates: start: 20081101, end: 20081111
  2. METOPROLOL TARTRATE [Concomitant]
  3. METFORMIN HCL [Concomitant]
  4. TRITACE [Concomitant]
  5. COENZYME Q10 [Concomitant]
  6. DIAMICRON [Concomitant]
     Indication: DIABETES MELLITUS
     Route: 048
  7. ISOCOVERT DIABEX [Concomitant]
     Indication: PROPHYLAXIS
     Route: 065
  8. PLAVIX [Concomitant]
     Indication: CARDIAC DISORDER
     Route: 065
  9. ASPIRIN [Concomitant]
     Route: 065
  10. VITAMIN [Concomitant]
  11. NATURAL SUPPLEMENTS [Concomitant]

REACTIONS (1)
  - MUSCLE SPASMS [None]
